FAERS Safety Report 16418785 (Version 1)
Quarter: 2019Q2

REPORT INFORMATION
  Report Type: Spontaneous
  Country: DE (occurrence: DE)
  Receive Date: 20190612
  Receipt Date: 20190612
  Transmission Date: 20190711
  Serious: Yes (Other)
  Sender: FDA-Public Use
  Company Number: DE-AUROBINDO-AUR-APL-2019-032610

PATIENT

DRUGS (2)
  1. LEVETIRACETAM. [Suspect]
     Active Substance: LEVETIRACETAM
     Indication: EPILEPSY
     Dosage: 500 MILLIGRAM, DAILY (250 MILLIGRAM, 2X/DAY (BID)
     Route: 065
  2. VIMPAT [Suspect]
     Active Substance: LACOSAMIDE
     Indication: EPILEPSY
     Dosage: 300 MILLIGRAM, DAILY (150 MILLIGRAM, 2X/DAY (BID)
     Route: 065

REACTIONS (4)
  - Aura [Unknown]
  - Focal dyscognitive seizures [Unknown]
  - Fatigue [Unknown]
  - Drug ineffective [Unknown]
